FAERS Safety Report 16463062 (Version 2)
Quarter: 2020Q2

REPORT INFORMATION
  Report Type: Spontaneous
  Country: US (occurrence: US)
  Receive Date: 20190621
  Receipt Date: 20200527
  Transmission Date: 20200713
  Serious: No
  Sender: FDA-Public Use
  Company Number: US-TEVA-2019-US-1058852

PATIENT
  Age: 66 Year
  Sex: Female

DRUGS (1)
  1. BUPROPION HYDROCHLORIDE. [Suspect]
     Active Substance: BUPROPION HYDROCHLORIDE
     Dosage: ACTAVIS BRAND SUSTAINED-RELEASE; STRENGTH UNDISCLOSED
     Route: 065

REACTIONS (2)
  - Weight increased [Unknown]
  - Dizziness [Unknown]
